FAERS Safety Report 16500785 (Version 1)
Quarter: 2019Q3

REPORT INFORMATION
  Report Type: Spontaneous
  Country: US (occurrence: US)
  Receive Date: 20190628
  Receipt Date: 20190628
  Transmission Date: 20191004
  Serious: Yes (Death)
  Sender: FDA-Public Use
  Company Number: None

PATIENT
  Age: 54 Year
  Sex: Female

DRUGS (10)
  1. OMEPRAZOLE. [Concomitant]
     Active Substance: OMEPRAZOLE
  2. CAPECITABINE. [Suspect]
     Active Substance: CAPECITABINE
     Indication: BREAST CANCER FEMALE
     Dosage: ?          OTHER FREQUENCY:4 @AM + 3 @PM 14DA;?
     Route: 048
     Dates: start: 20181119
  3. NITROFUR MAC [Concomitant]
     Active Substance: NITROFURANTOIN
  4. ATORVASTATIN [Concomitant]
     Active Substance: ATORVASTATIN
  5. PROCHLORPER [Concomitant]
  6. OXYCODONE [Concomitant]
     Active Substance: OXYCODONE
  7. METOPROLOL SUCC [Concomitant]
     Active Substance: METOPROLOL SUCCINATE
  8. FENTANYL. [Concomitant]
     Active Substance: FENTANYL
  9. LEVOTHYROXINE. [Concomitant]
     Active Substance: LEVOTHYROXINE
  10. CEFDINIR. [Concomitant]
     Active Substance: CEFDINIR

REACTIONS (1)
  - Death [None]

NARRATIVE: CASE EVENT DATE: 20190616
